FAERS Safety Report 5108096-9 (Version None)
Quarter: 2006Q3

REPORT INFORMATION
  Report Type: 
  Country: None (occurrence: None)
  Receive Date: 20060919
  Receipt Date: 20060905
  Transmission Date: 20061208
  Serious: Yes (Death, Hospitalization)
  Sender: FDA-Public Use
  Company Number: US-JNJFOC-20060902169

PATIENT
  Age: 23 Year
  Sex: Female

DRUGS (1)
  1. ACETAMINOPHEN/DIPHENHYDRAMINE [Suspect]
     Indication: DRUG USE FOR UNKNOWN INDICATION
     Route: 048

REACTIONS (5)
  - BRAIN HERNIATION [None]
  - DRUG TOXICITY [None]
  - ELECTROLYTE IMBALANCE [None]
  - HEPATIC FUNCTION ABNORMAL [None]
  - RESPIRATORY DISTRESS [None]
